FAERS Safety Report 22539614 (Version 1)
Quarter: 2023Q2

REPORT INFORMATION
  Report Type: Spontaneous
  Country: US (occurrence: None)
  Receive Date: 20230609
  Receipt Date: 20230609
  Transmission Date: 20230722
  Serious: Yes (Other)
  Sender: FDA-Public Use
  Company Number: US-ROCHE-3362564

PATIENT
  Sex: Female

DRUGS (5)
  1. HERCEPTIN [Suspect]
     Active Substance: TRASTUZUMAB
     Indication: Product used for unknown indication
     Route: 041
  2. XGEVA [Concomitant]
     Active Substance: DENOSUMAB
  3. VITAMIN D2 [Concomitant]
     Active Substance: ERGOCALCIFEROL
  4. IBRANCE [Concomitant]
     Active Substance: PALBOCICLIB
     Indication: Breast cancer
     Dosage: 100MG TABLET ORALLY, THREE WEEKS ON AND ONE WEEK OFF
     Route: 048
     Dates: start: 20211101
  5. IBRANCE [Concomitant]
     Active Substance: PALBOCICLIB
     Dosage: IBRANCE HELD ON 16/MAY/2023 TO 16/JUN/2023 FOR RADIATION
     Route: 048
     Dates: start: 20230516

REACTIONS (3)
  - Migraine [Not Recovered/Not Resolved]
  - Fatigue [Not Recovered/Not Resolved]
  - Pain [Not Recovered/Not Resolved]
